FAERS Safety Report 12683044 (Version 1)
Quarter: 2016Q3

REPORT INFORMATION
  Report Type: Spontaneous
  Country: US (occurrence: None)
  Receive Date: 20160824
  Receipt Date: 20160824
  Transmission Date: 20161109
  Serious: Yes (Congenital Anomaly)
  Sender: FDA-Public Use
  Company Number: None

PATIENT
  Age: 0 Day
  Sex: Female
  Weight: 17.69 kg

DRUGS (4)
  1. ZOFRAN [Suspect]
     Active Substance: ONDANSETRON HYDROCHLORIDE
     Indication: NAUSEA
     Route: 048
     Dates: start: 20100517, end: 20100630
  2. VITAMIN C [Concomitant]
     Active Substance: ASCORBIC ACID
  3. MELATONIN [Concomitant]
     Active Substance: MELATONIN
  4. MULTIVITAMIN [Concomitant]
     Active Substance: VITAMINS

REACTIONS (2)
  - Pectus excavatum [None]
  - Maternal drugs affecting foetus [None]

NARRATIVE: CASE EVENT DATE: 20110113
